FAERS Safety Report 16536017 (Version 2)
Quarter: 2019Q3

REPORT INFORMATION
  Report Type: Report from Study
  Country: PK (occurrence: PK)
  Receive Date: 20190705
  Receipt Date: 20190709
  Transmission Date: 20191004
  Serious: Yes (Other)
  Sender: FDA-Public Use
  Company Number: PHHY2019PK152401

PATIENT
  Age: 66 Year
  Sex: Female

DRUGS (6)
  1. GALVUS MET [Suspect]
     Active Substance: METFORMIN HYDROCHLORIDE\VILDAGLIPTIN
     Indication: DIABETES MELLITUS
     Dosage: 1 DF, BID (850 MG METFORMIN, 50 MG VILDAGLIPTIN)
     Route: 048
     Dates: start: 20160308, end: 20171114
  2. GALVUS [Suspect]
     Active Substance: VILDAGLIPTIN
     Indication: DIABETES MELLITUS
     Dosage: 50 MG, QD
     Route: 048
     Dates: start: 20171114, end: 20181129
  3. GALVUS MET [Suspect]
     Active Substance: METFORMIN HYDROCHLORIDE\VILDAGLIPTIN
     Dosage: 1 DF, BID (1000 MG METFORMIN, 50 MG VILDAGLIPTIN)
     Route: 048
     Dates: start: 20181129, end: 20190430
  4. GALVUS [Suspect]
     Active Substance: VILDAGLIPTIN
     Dosage: 50 MG, BID
     Route: 048
     Dates: start: 20190422, end: 20190430
  5. GALVUS MET [Suspect]
     Active Substance: METFORMIN HYDROCHLORIDE\VILDAGLIPTIN
     Dosage: 1 DF, BID (500 MG METFORMIN, 50 MG VILDAGLIPTIN)
     Route: 048
     Dates: start: 20190430
  6. INSULIN [Concomitant]
     Active Substance: INSULIN NOS
     Indication: PRODUCT USED FOR UNKNOWN INDICATION
     Route: 065

REACTIONS (11)
  - Diabetes mellitus inadequate control [Recovered/Resolved]
  - Blood glucose increased [Recovered/Resolved]
  - Hyperhidrosis [Unknown]
  - Asthenia [Unknown]
  - Polydipsia [Unknown]
  - Diabetes mellitus inadequate control [Recovered/Resolved]
  - Diabetes mellitus inadequate control [Recovered/Resolved]
  - Polyuria [Unknown]
  - Hypoaesthesia [Unknown]
  - Hunger [Unknown]
  - Fatigue [Unknown]

NARRATIVE: CASE EVENT DATE: 20171111
